FAERS Safety Report 8370226-3 (Version None)
Quarter: 2012Q2

REPORT INFORMATION
  Report Type: 
  Country: None (occurrence: None)
  Receive Date: 20120518
  Receipt Date: 20120510
  Transmission Date: 20120825
  Serious: Yes (Hospitalization)
  Sender: FDA-Public Use
  Company Number: JP-EISAI INC-E3810-05498-CLI-JP

PATIENT
  Sex: Male
  Weight: 55 kg

DRUGS (14)
  1. LOPERAMIDE HCL [Concomitant]
     Indication: DIARRHOEA
     Route: 048
     Dates: start: 20120420
  2. WARFARIN SODIUM [Suspect]
     Indication: PROPHYLAXIS
     Route: 048
     Dates: start: 20111003, end: 20120415
  3. NIPOLAZIN [Concomitant]
     Indication: URTICARIA CHRONIC
     Route: 048
     Dates: start: 20090226
  4. CERNILTON [Concomitant]
     Route: 048
  5. ASPIRIN [Suspect]
     Indication: PROPHYLAXIS
     Route: 048
     Dates: start: 20110202
  6. ASPENON [Concomitant]
     Indication: ATRIAL FIBRILLATION
     Route: 048
     Dates: start: 20071214
  7. RABEPRAZOLE SODIUM [Suspect]
     Indication: PROPHYLAXIS AGAINST GASTROINTESTINAL ULCER
     Dosage: UNKNOWN
     Route: 048
     Dates: start: 20120327, end: 20120430
  8. FERROUS CITRATE [Concomitant]
     Indication: IRON DEFICIENCY ANAEMIA
     Route: 048
     Dates: start: 20090304
  9. LAC-B [Concomitant]
     Indication: DIARRHOEA
     Route: 048
     Dates: start: 20120420
  10. DILTIAZEM HCL [Concomitant]
     Indication: PERCUTANEOUS CORONARY INTERVENTION
     Route: 048
  11. WARFARIN SODIUM [Suspect]
     Route: 048
     Dates: start: 20120505
  12. PERSANTINE [Suspect]
     Indication: PROPHYLAXIS
     Route: 048
     Dates: end: 20120501
  13. WARFARIN SODIUM [Suspect]
     Route: 048
     Dates: start: 20120416, end: 20120430
  14. URINORM [Concomitant]
     Indication: HYPERURICAEMIA
     Route: 048

REACTIONS (1)
  - GASTROINTESTINAL HAEMORRHAGE [None]
